FAERS Safety Report 9292010 (Version 1)
Quarter: 2013Q2

REPORT INFORMATION
  Report Type: Spontaneous
  Country: US (occurrence: US)
  Receive Date: 20130516
  Receipt Date: 20130516
  Transmission Date: 20140414
  Serious: No
  Sender: FDA-Public Use
  Company Number: US-PFIZER INC-2013148593

PATIENT
  Sex: Female

DRUGS (1)
  1. NITROSTAT [Suspect]
     Dosage: UNK

REACTIONS (2)
  - Flushing [Unknown]
  - Erythema [Unknown]
